FAERS Safety Report 21986579 (Version 1)
Quarter: 2023Q1

REPORT INFORMATION
  Report Type: Spontaneous
  Country: US (occurrence: None)
  Receive Date: 20230210
  Receipt Date: 20230210
  Transmission Date: 20230418
  Serious: No
  Sender: FDA-Public Use
  Company Number: None

PATIENT
  Sex: Male

DRUGS (1)
  1. ENBREL [Suspect]
     Active Substance: ETANERCEPT
     Indication: Psoriasis
     Dosage: 50MG/ML EVERY 7 DAYS SQ?
     Route: 058
     Dates: start: 20201211

REACTIONS (3)
  - Pruritus [None]
  - Pain [None]
  - Burning sensation [None]
